FAERS Safety Report 7585624-5 (Version None)
Quarter: 2011Q2

REPORT INFORMATION
  Report Type: 
  Country: None (occurrence: None)
  Receive Date: 20110624
  Receipt Date: 20110609
  Transmission Date: 20111010
  Serious: Yes (Hospitalization)
  Sender: FDA-Public Use
  Company Number: DSJ-2011-07463

PATIENT
  Age: 80 Year
  Sex: Female
  Weight: 64 kg

DRUGS (6)
  1. LACTULOSE [Suspect]
     Indication: PRODUCT USED FOR UNKNOWN INDICATION
     Dosage: 40.8 GM,
  2. JUVELA (TOCOPHERYL ACETATE) (TOCHOPHERYL ACETATE) [Suspect]
     Indication: PRODUCT USED FOR UNKNOWN INDICATION
     Dosage: 150 MG,
  3. MAGLAX (MAGNESIUM OIXIDE) (MAGNESIUM OXIDE) [Suspect]
     Indication: PRODUCT USED FOR UNKNOWN INDICATION
     Dosage: 1000 MG;
     Dates: end: 20110123
  4. BOIOGITO (INGREDIENT UNKNOWN) [Suspect]
     Indication: PRODUCT USED FOR UNKNOWN INDICATION
     Dosage: 5 GM,
  5. OLMESARTAN MEDOXOMIL [Suspect]
     Indication: ESSENTIAL HYPERTENSION
     Dosage: 20 MG , PER ORAL
     Route: 048
     Dates: start: 20100318, end: 20100318
  6. ECARD HD (HYDROCHLOROTHIAZIDE, CANDESARTAN CILEXETIL) (TABLET) [Concomitant]

REACTIONS (1)
  - PERIPHERAL VASCULAR DISORDER [None]
